FAERS Safety Report 6306720-6 (Version None)
Quarter: 2009Q3

REPORT INFORMATION
  Report Type: 
  Country: None (occurrence: None)
  Receive Date: 20090812
  Receipt Date: 20090603
  Transmission Date: 20100115
  Serious: No
  Sender: FDA-Public Use
  Company Number: A0788607A

PATIENT
  Sex: Male

DRUGS (1)
  1. VERAMYST [Suspect]
     Dosage: 2PUFF PER DAY
     Route: 045

REACTIONS (1)
  - RASH [None]
